FAERS Safety Report 16254420 (Version 2)
Quarter: 2019Q2

REPORT INFORMATION
  Report Type: Report from Study
  Country: KR (occurrence: KR)
  Receive Date: 20190430
  Receipt Date: 20190502
  Transmission Date: 20190711
  Serious: Yes (Other)
  Sender: FDA-Public Use
  Company Number: KR-UCBSA-2019016901

PATIENT

DRUGS (1)
  1. LEVETIRACETAM. [Suspect]
     Active Substance: LEVETIRACETAM
     Indication: EPILEPSY
     Dosage: UNK

REACTIONS (7)
  - Drug ineffective [Unknown]
  - Seizure [Unknown]
  - Behaviour disorder [Unknown]
  - Fatigue [Unknown]
  - Sleep disorder [Unknown]
  - Off label use [Unknown]
  - Anger [Unknown]
